FAERS Safety Report 13727286 (Version 3)
Quarter: 2017Q3

REPORT INFORMATION
  Report Type: Report from Study
  Country: US (occurrence: US)
  Receive Date: 20170706
  Receipt Date: 20170816
  Transmission Date: 20171127
  Serious: Yes (Hospitalization, Other)
  Sender: FDA-Public Use
  Company Number: US-VIFOR (INTERNATIONAL) INC.-VIT-2017-07116

PATIENT
  Age: 80 Year
  Sex: Male
  Weight: 108.96 kg

DRUGS (3)
  1. VELTASSA [Suspect]
     Active Substance: PATIROMER
     Indication: HYPERKALAEMIA
     Route: 048
     Dates: start: 20170526
  2. ELIQUIS [Concomitant]
     Active Substance: APIXABAN
  3. SODIUM BICARBONATE. [Concomitant]
     Active Substance: SODIUM BICARBONATE

REACTIONS (3)
  - Diverticulitis [Recovered/Resolved]
  - Drug dose omission [Recovered/Resolved]
  - Ventricular dyssynchrony [Recovered/Resolved]

NARRATIVE: CASE EVENT DATE: 2017
